FAERS Safety Report 7374904-4 (Version None)
Quarter: 2011Q1

REPORT INFORMATION
  Report Type: 
  Country: None (occurrence: None)
  Receive Date: 20110325
  Receipt Date: 20110316
  Transmission Date: 20110831
  Serious: Yes (Death)
  Sender: FDA-Public Use
  Company Number: US-MYLANLABS-2011S1005598

PATIENT
  Age: 45 Year
  Sex: Male

DRUGS (5)
  1. FENTANYL-100 [Suspect]
     Dosage: CHANGES PATCHES Q2D
     Route: 062
  2. CARISOPRODOL [Concomitant]
  3. NAPROXEN [Concomitant]
  4. FENTANYL-100 [Suspect]
     Route: 062
  5. MORPHINE [Suspect]
     Dates: end: 20100918

REACTIONS (1)
  - OVERDOSE [None]
